FAERS Safety Report 22324407 (Version 2)
Quarter: 2023Q2

REPORT INFORMATION
  Report Type: Report from Study
  Country: DE (occurrence: DE)
  Receive Date: 20230516
  Receipt Date: 20230519
  Transmission Date: 20230722
  Serious: Yes (Death, Hospitalization, Other)
  Sender: FDA-Public Use
  Company Number: DE-KOREA IPSEN Pharma-2023-10538

PATIENT

DRUGS (2)
  1. CABOZANTINIB [Suspect]
     Active Substance: CABOZANTINIB
     Indication: Hepatocellular carcinoma
     Dosage: 60 MG
     Route: 065
     Dates: start: 20230307, end: 20230423
  2. LOPERAMIDE [Concomitant]
     Active Substance: LOPERAMIDE
     Dosage: UNK

REACTIONS (16)
  - Acute hepatic failure [Fatal]
  - Acute kidney injury [Fatal]
  - Sepsis [Unknown]
  - Coma [Unknown]
  - Hyperkalaemia [Unknown]
  - Metastasis [Unknown]
  - Hepatomegaly [Unknown]
  - Spinal pain [Unknown]
  - Jaundice [Unknown]
  - Pyrexia [Unknown]
  - Muscular weakness [Unknown]
  - Decreased appetite [Unknown]
  - Asthenia [Unknown]
  - Abdominal pain [Unknown]
  - Weight decreased [Unknown]
  - Off label use [Unknown]

NARRATIVE: CASE EVENT DATE: 20230423
